FAERS Safety Report 5691087-7 (Version None)
Quarter: 2008Q2

REPORT INFORMATION
  Report Type: 
  Country: None (occurrence: None)
  Receive Date: 20080401
  Receipt Date: 20080328
  Transmission Date: 20081010
  Serious: Yes (Hospitalization)
  Sender: FDA-Public Use
  Company Number: US-BOEHRINGER INGELHEIM GMBH, GERMANY-2008-DE-01884GD

PATIENT
  Age: 33 Year
  Sex: Male

DRUGS (7)
  1. PREDNISONE [Suspect]
     Indication: HYPEREOSINOPHILIC SYNDROME
     Dosage: 60 MG AT STUDY ENTRY, TAPERED TO 20 MG, SUBSEQUENTLY INCREASED TO 30 MG
  2. LORCET [Concomitant]
  3. GLIPIZIDE [Concomitant]
  4. LISINOPRIL [Concomitant]
  5. SIMVASTATIN [Concomitant]
  6. FUROSEMIDE [Concomitant]
  7. HYZAAR [Concomitant]

REACTIONS (3)
  - GLOMERULONEPHRITIS MEMBRANOUS [None]
  - NEPHROTIC SYNDROME [None]
  - OEDEMA PERIPHERAL [None]
